FAERS Safety Report 12705119 (Version 1)
Quarter: 2016Q3

REPORT INFORMATION
  Report Type: Spontaneous
  Country: US (occurrence: None)
  Receive Date: 20160831
  Receipt Date: 20160831
  Transmission Date: 20161109
  Serious: No
  Sender: FDA-Public Use
  Company Number: None

PATIENT

DRUGS (2)
  1. MAJOR EYE WASH [Suspect]
     Active Substance: WATER
     Indication: EYE IRRIGATION
     Route: 031
  2. RUGBY EYE IRRIGATING [Suspect]
     Active Substance: WATER
     Indication: EYE IRRIGATION
     Route: 031

REACTIONS (3)
  - Infective keratitis [None]
  - Bacterial test positive [None]
  - Transplantation complication [None]
